FAERS Safety Report 19080390 (Version 7)
Quarter: 2021Q2

REPORT INFORMATION
  Report Type: Report from Study
  Country: PT (occurrence: PT)
  Receive Date: 20210401
  Receipt Date: 20210525
  Transmission Date: 20210717
  Serious: Yes (Hospitalization, Other)
  Sender: FDA-Public Use
  Company Number: PT-AUROBINDO-AUR-APL-2021-011587

PATIENT
  Age: 41 Year
  Sex: Female

DRUGS (12)
  1. TIVICAY [Suspect]
     Active Substance: DOLUTEGRAVIR SODIUM
     Indication: ANTIRETROVIRAL THERAPY
     Dosage: 50 MILLIGRAM, ONCE A DAY
     Route: 048
     Dates: start: 2019
  2. EMTRICITABINE [Suspect]
     Active Substance: EMTRICITABINE
     Indication: ANTIRETROVIRAL THERAPY
     Dosage: 200 MILLIGRAM, ONCE A DAY
     Route: 048
     Dates: start: 2019
  3. EMTRICITABINE [Suspect]
     Active Substance: EMTRICITABINE
     Indication: HIV INFECTION
  4. TENOFOVIR FILM COATED TABLETS [Suspect]
     Active Substance: TENOFOVIR
     Indication: HEPATITIS B
  5. EMTRICITABINE [Suspect]
     Active Substance: EMTRICITABINE
     Indication: HEPATITIS B
  6. GLUCOSE;SODIUM CHLORIDE [Suspect]
     Active Substance: DEXTROSE\SODIUM CHLORIDE
     Indication: DIABETES WITH HYPEROSMOLARITY
     Dosage: UNK
     Route: 065
  7. TIVICAY [Suspect]
     Active Substance: DOLUTEGRAVIR SODIUM
     Indication: HEPATITIS B
  8. TENOFOVIR FILM COATED TABLETS [Suspect]
     Active Substance: TENOFOVIR
     Indication: ANTIRETROVIRAL THERAPY
     Dosage: 245 MILLIGRAM, ONCE A DAY
     Route: 048
     Dates: start: 2019
  9. DESMOPRESSIN [Suspect]
     Active Substance: DESMOPRESSIN
     Indication: HYPERNATRAEMIA
     Dosage: 0.6 MILLIGRAM, ONCE A DAY
     Route: 048
  10. TIVICAY [Suspect]
     Active Substance: DOLUTEGRAVIR SODIUM
     Indication: HIV INFECTION
  11. TENOFOVIR FILM COATED TABLETS [Suspect]
     Active Substance: TENOFOVIR
     Indication: HIV INFECTION
  12. DESMOPRESSIN [Suspect]
     Active Substance: DESMOPRESSIN
     Indication: DIABETES INSIPIDUS
     Dosage: 0.6 MILLIGRAM, TWO TIMES A DAY
     Route: 048

REACTIONS (19)
  - Renal impairment [Recovered/Resolved]
  - Communication disorder [Recovered/Resolved]
  - Malaise [Recovered/Resolved]
  - Hypernatraemia [Recovered/Resolved]
  - Exposure during pregnancy [Unknown]
  - Dysmetria [Recovered/Resolved]
  - Maternal exposure during pregnancy [Recovered/Resolved]
  - Anaemia [Recovered/Resolved]
  - Nephrogenic diabetes insipidus [Recovered/Resolved]
  - Foetal growth restriction [Not Recovered/Not Resolved]
  - Cerebellar ataxia [Recovered/Resolved]
  - Diabetes with hyperosmolarity [Recovered/Resolved]
  - Ataxia [Recovered/Resolved]
  - Diabetes insipidus [Recovered/Resolved]
  - Hyperosmolar state [Recovered/Resolved]
  - Oligohydramnios [Recovered/Resolved]
  - Treatment noncompliance [Unknown]
  - Gestational diabetes [Recovered/Resolved]
  - Abortion induced [Unknown]
